FAERS Safety Report 10084842 (Version 2)
Quarter: 2014Q2

REPORT INFORMATION
  Report Type: Spontaneous
  Country: BR (occurrence: BR)
  Receive Date: 20140417
  Receipt Date: 20140501
  Transmission Date: 20141212
  Serious: Yes (Hospitalization)
  Sender: FDA-Public Use
  Company Number: BR-ELI_LILLY_AND_COMPANY-BR201404003234

PATIENT
  Age: 16 Year
  Sex: Female
  Weight: 70 kg

DRUGS (2)
  1. HUMALOG [Suspect]
     Indication: PRODUCT USED FOR UNKNOWN INDICATION
     Dosage: UNK UNK, TID
     Route: 058
  2. HUMULIN N [Suspect]
     Indication: PRODUCT USED FOR UNKNOWN INDICATION
     Dosage: UNK, OTHER
     Route: 058

REACTIONS (10)
  - Blood glucose increased [Not Recovered/Not Resolved]
  - Ketoacidosis [Unknown]
  - Heart rate increased [Unknown]
  - Weight decreased [Recovered/Resolved]
  - Vomiting [Unknown]
  - Chest pain [Unknown]
  - Dyspnoea [Unknown]
  - Pneumonia [Unknown]
  - Influenza [Unknown]
  - Drug dose omission [Unknown]
